FAERS Safety Report 13887829 (Version 1)
Quarter: 2017Q3

REPORT INFORMATION
  Report Type: Spontaneous
  Country: US (occurrence: US)
  Receive Date: 20170816
  Receipt Date: 20170816
  Transmission Date: 20171127
  Serious: Yes (Other)
  Sender: FDA-Public Use
  Company Number: None

PATIENT
  Age: 9 Year
  Sex: Female
  Weight: 33.75 kg

DRUGS (1)
  1. MONTELUKAST [Suspect]
     Active Substance: MONTELUKAST SODIUM
     Indication: ASTHMA
     Dates: start: 20110120, end: 20110220

REACTIONS (11)
  - Nervousness [None]
  - Tremor [None]
  - Tic [None]
  - Anxiety [None]
  - Fear [None]
  - Withdrawal syndrome [None]
  - Aggression [None]
  - Psychomotor hyperactivity [None]
  - Obsessive-compulsive disorder [None]
  - Abnormal behaviour [None]
  - Myalgia [None]
